FAERS Safety Report 11373904 (Version 1)
Quarter: 2015Q3

REPORT INFORMATION
  Report Type: Spontaneous
  Country: US (occurrence: US)
  Receive Date: 20150811
  Receipt Date: 20150811
  Transmission Date: 20151125
  Serious: No
  Sender: FDA-Public Use
  Company Number: US-ELI_LILLY_AND_COMPANY-US201110003598

PATIENT

DRUGS (13)
  1. ZOCOR [Concomitant]
     Active Substance: SIMVASTATIN
     Dosage: 10 MG, QD
  2. TRICOR [Concomitant]
     Active Substance: FENOFIBRATE
     Dosage: 140 MG, QD
  3. COUMADIN [Concomitant]
     Active Substance: WARFARIN SODIUM
     Dosage: 1.25 MG, QD
  4. VITAMIN D [Concomitant]
     Active Substance: CHOLECALCIFEROL
  5. ALDACTONE [Concomitant]
     Active Substance: SPIRONOLACTONE
     Dosage: 25 MG, QD
  6. NORVASC [Concomitant]
     Active Substance: AMLODIPINE BESYLATE
     Dosage: 10 MG, QD
  7. HUMALOG [Concomitant]
     Active Substance: INSULIN LISPRO
     Dosage: 40 U, BID
  8. TORSEMIDE. [Concomitant]
     Active Substance: TORSEMIDE
     Dosage: 40 MG, QD
  9. ADCIRCA [Suspect]
     Active Substance: TADALAFIL
     Indication: CARDIAC FAILURE CONGESTIVE
     Dosage: 40 MG, QD
  10. CARVEDILOL. [Concomitant]
     Active Substance: CARVEDILOL
     Dosage: 12.5 MG, BID
  11. SOTALOL. [Concomitant]
     Active Substance: SOTALOL
     Dosage: 40 MG, QD
  12. PAXIL [Concomitant]
     Active Substance: PAROXETINE HYDROCHLORIDE
     Dosage: 30 MG, QD
  13. HYDRALAZINE [Concomitant]
     Active Substance: HYDRALAZINE HYDROCHLORIDE
     Dosage: 52 MG, TID

REACTIONS (4)
  - Lethargy [Not Recovered/Not Resolved]
  - Dyspnoea [Not Recovered/Not Resolved]
  - Pain [Not Recovered/Not Resolved]
  - Pain in extremity [Recovering/Resolving]
